FAERS Safety Report 17754894 (Version 1)
Quarter: 2020Q2

REPORT INFORMATION
  Report Type: Spontaneous
  Country: US (occurrence: US)
  Receive Date: 20200507
  Receipt Date: 20200507
  Transmission Date: 20200714
  Serious: No
  Sender: FDA-Public Use
  Company Number: US-009507513-2005USA001457

PATIENT
  Sex: Male

DRUGS (2)
  1. ANORO [Concomitant]
     Active Substance: UMECLIDINIUM BROMIDE\VILANTEROL TRIFENATATE
  2. PROVENTIL [Suspect]
     Active Substance: ALBUTEROL
     Indication: CHRONIC OBSTRUCTIVE PULMONARY DISEASE
     Dosage: 2 PUFS EVERY 4 HOURS AS NEEDED
     Route: 055

REACTIONS (4)
  - Poor quality device used [Unknown]
  - Product dose omission [Unknown]
  - Product use in unapproved indication [Unknown]
  - Product quality issue [Unknown]
